FAERS Safety Report 4414701-2 (Version None)
Quarter: 2004Q3

REPORT INFORMATION
  Report Type: 
  Country: None (occurrence: None)
  Receive Date: 20040804
  Receipt Date: 20030506
  Transmission Date: 20050211
  Serious: No
  Sender: FDA-Public Use
  Company Number: US-BRISTOL-MYERS SQUIBB COMPANY-12267639

PATIENT
  Age: 43 Month
  Sex: Female
  Weight: 84 kg

DRUGS (3)
  1. GLUCOVANCE [Suspect]
     Indication: DIABETES MELLITUS
     Route: 048
     Dates: start: 20030301
  2. GEODON [Concomitant]
  3. ZYPREXA [Concomitant]

REACTIONS (1)
  - ALOPECIA [None]
